FAERS Safety Report 24864285 (Version 1)
Quarter: 2025Q1

REPORT INFORMATION
  Report Type: Spontaneous
  Country: US (occurrence: US)
  Receive Date: 20250120
  Receipt Date: 20250120
  Transmission Date: 20250409
  Serious: No
  Sender: AMGEN
  Company Number: US-AMGEN-USASP2025006661

PATIENT
  Age: 57 Year
  Sex: Female

DRUGS (3)
  1. TEPEZZA [Suspect]
     Active Substance: TEPROTUMUMAB-TRBW
     Indication: Toxic goitre
     Dosage: 717 MILLIGRAM, Q3WK (FIRST DOSE)
     Route: 040
     Dates: start: 20240808
  2. TEPEZZA [Suspect]
     Active Substance: TEPROTUMUMAB-TRBW
     Dosage: 1434 MILLIGRAM, Q3WK (THIRD INFUSION)
     Route: 040
     Dates: start: 2024
  3. TEPEZZA [Suspect]
     Active Substance: TEPROTUMUMAB-TRBW
     Dosage: 1434 MILLIGRAM, Q3WK (SIXTH INFUSION)
     Route: 040
     Dates: start: 2024

REACTIONS (3)
  - Muscle spasms [Recovering/Resolving]
  - Hypertension [Recovering/Resolving]
  - Heart rate abnormal [Recovering/Resolving]

NARRATIVE: CASE EVENT DATE: 20240101
